FAERS Safety Report 9300824 (Version 1)
Quarter: 2013Q2

REPORT INFORMATION
  Report Type: Spontaneous
  Country: IT (occurrence: IT)
  Receive Date: 20130521
  Receipt Date: 20130521
  Transmission Date: 20140414
  Serious: Yes (Other)
  Sender: FDA-Public Use
  Company Number: PHHY2013IT049500

PATIENT
  Age: 75 Year
  Sex: Female

DRUGS (11)
  1. QUETIAPINE [Suspect]
     Indication: INSOMNIA
     Dosage: 25 MG, AT BED TIME
  2. QUETIAPINE [Suspect]
     Indication: DEPRESSION
  3. ESCITALOPRAM [Concomitant]
     Indication: DEPRESSION
     Dosage: 10 MG, PER DAY
  4. ESCITALOPRAM [Concomitant]
     Indication: INSOMNIA
  5. LORMETAZEPAM [Concomitant]
     Indication: DEPRESSION
     Dosage: 1-2 MG AT BED TIME
  6. LORMETAZEPAM [Concomitant]
     Indication: INSOMNIA
  7. AMITRIPTYLINE [Concomitant]
     Indication: MIGRAINE
     Dosage: 10 MG, AT BED TIME
  8. MANIDIPINE [Concomitant]
     Indication: HYPERTENSION
     Dosage: 20 MG, PER DAY
  9. NEBIVOLOL [Concomitant]
     Indication: HYPERTENSION
     Dosage: 5 MG, PER DAY
  10. METFORMIN [Concomitant]
     Indication: HYPERGLYCAEMIA
     Dosage: 500 MG, AT DINNER
  11. FENOFIBRATE [Concomitant]
     Indication: HYPERTRIGLYCERIDAEMIA
     Dosage: 200 MG, PER DAY

REACTIONS (3)
  - Somnambulism [Unknown]
  - Sleep talking [Unknown]
  - Abnormal dreams [Unknown]
